FAERS Safety Report 16090194 (Version 7)
Quarter: 2021Q2

REPORT INFORMATION
  Report Type: Spontaneous
  Country: US (occurrence: US)
  Receive Date: 20190319
  Receipt Date: 20210407
  Transmission Date: 20210716
  Serious: No
  Sender: FDA-Public Use
  Company Number: US-SA-2019SA073110

PATIENT
  Age: 90 Year
  Sex: Male
  Weight: 64.8 kg

DRUGS (19)
  1. CALCIUM CARBONATE. [Concomitant]
     Active Substance: CALCIUM CARBONATE
  2. METOPROLOL TARTRATE. [Concomitant]
     Active Substance: METOPROLOL TARTRATE
  3. PLAVIX [Concomitant]
     Active Substance: CLOPIDOGREL BISULFATE
  4. VITAMIN B12 [VITAMIN B12 NOS] [Concomitant]
     Active Substance: CYANOCOBALAMIN
  5. VITAMIN D3 [Concomitant]
     Active Substance: CHOLECALCIFEROL
  6. TAMSULOSIN [Concomitant]
     Active Substance: TAMSULOSIN
  7. FISH OIL [Concomitant]
     Active Substance: FISH OIL
  8. MULTIVITAMINS [VITAMINS NOS] [Concomitant]
     Active Substance: VITAMINS
  9. PROAIR HFA [Concomitant]
     Active Substance: ALBUTEROL SULFATE
  10. VITAMIN C [Concomitant]
     Active Substance: ASCORBIC ACID
  11. DUPIXENT [Suspect]
     Active Substance: DUPILUMAB
     Indication: DERMATITIS ATOPIC
     Dosage: 300 MG, QOW
     Route: 058
     Dates: start: 20181115, end: 201910
  12. ATORVASTATIN CALCIUM. [Concomitant]
     Active Substance: ATORVASTATIN CALCIUM
  13. PROBIOTIC BLEND [Concomitant]
  14. ALLER TEC [Concomitant]
     Active Substance: CETIRIZINE HYDROCHLORIDE
  15. DILTIAZEM. [Concomitant]
     Active Substance: DILTIAZEM
  16. DUREZOL [Concomitant]
     Active Substance: DIFLUPREDNATE
  17. ASPIRIN [ACETYLSALICYLIC ACID] [Concomitant]
     Active Substance: ASPIRIN
  18. DUPIXENT [Suspect]
     Active Substance: DUPILUMAB
     Dosage: UNK
     Dates: start: 202001
  19. LUBRICATING PLUS [Concomitant]
     Active Substance: CARBOXYMETHYLCELLULOSE SODIUM

REACTIONS (12)
  - Pruritus [Unknown]
  - Skin discolouration [Unknown]
  - Skin haemorrhage [Unknown]
  - Rash [Recovering/Resolving]
  - Drug ineffective [Unknown]
  - Skin fissures [Unknown]
  - Candida infection [Recovered/Resolved]
  - Furuncle [Unknown]
  - Hypoaesthesia [Unknown]
  - Dermatitis acneiform [Unknown]
  - Erythema [Unknown]
  - Dry skin [Unknown]

NARRATIVE: CASE EVENT DATE: 201910
